FAERS Safety Report 21018704 (Version 1)
Quarter: 2022Q2

REPORT INFORMATION
  Report Type: Spontaneous
  Country: US (occurrence: US)
  Receive Date: 20220628
  Receipt Date: 20220628
  Transmission Date: 20220721
  Serious: Yes (Other)
  Sender: FDA-Public Use
  Company Number: US-PFIZER INC-202200902107

PATIENT
  Age: 70 Year
  Sex: Male
  Weight: 81.633 kg

DRUGS (3)
  1. PAXLOVID [Suspect]
     Active Substance: NIRMATRELVIR\RITONAVIR
     Indication: COVID-19 treatment
     Dosage: UNK
  2. ENALAPRIL [Concomitant]
     Active Substance: ENALAPRIL
     Indication: Blood pressure abnormal
     Dosage: 5 MG (TAKING A PILL LIKE THAT AND WAS TAKING A DAY)
  3. ENALAPRIL [Concomitant]
     Active Substance: ENALAPRIL
     Indication: Dizziness

REACTIONS (2)
  - Weight decreased [Unknown]
  - Dizziness [Unknown]
